FAERS Safety Report 15648225 (Version 6)
Quarter: 2019Q2

REPORT INFORMATION
  Report Type: Report from Study
  Country: BR (occurrence: BR)
  Receive Date: 20181122
  Receipt Date: 20190617
  Transmission Date: 20190711
  Serious: Yes (Death, Hospitalization, Other)
  Sender: FDA-Public Use
  Company Number: PHHY2018BR160219

PATIENT
  Age: 40 Year
  Sex: Male
  Weight: 110 kg

DRUGS (5)
  1. ETANERCEPT [Concomitant]
     Active Substance: ETANERCEPT
     Indication: PRODUCT USED FOR UNKNOWN INDICATION
     Route: 065
  2. METFORMIN [Concomitant]
     Active Substance: METFORMIN HYDROCHLORIDE
     Dosage: 1 DF, QD
     Route: 048
     Dates: start: 2018
  3. COSENTYX [Suspect]
     Active Substance: SECUKINUMAB
     Dosage: 150 MG, QMO (1 AMPOULE)
     Route: 058
     Dates: end: 201902
  4. COSENTYX [Suspect]
     Active Substance: SECUKINUMAB
     Indication: ANKYLOSING SPONDYLITIS
     Dosage: 150 MG, QW
     Route: 058
     Dates: start: 20181017
  5. METFORMIN [Concomitant]
     Active Substance: METFORMIN HYDROCHLORIDE
     Indication: BLOOD GLUCOSE INCREASED
     Dosage: 850 MG, UNK
     Route: 065

REACTIONS (32)
  - Pain [Fatal]
  - Pain in extremity [Fatal]
  - Feeling abnormal [Not Recovered/Not Resolved]
  - Neoplasm [Not Recovered/Not Resolved]
  - Musculoskeletal pain [Fatal]
  - Infection [Not Recovered/Not Resolved]
  - Pulmonary sepsis [Fatal]
  - Nervousness [Not Recovered/Not Resolved]
  - Neck pain [Fatal]
  - Erythema [Not Recovered/Not Resolved]
  - Lung disorder [Not Recovered/Not Resolved]
  - Weight increased [Not Recovered/Not Resolved]
  - Septic shock [Fatal]
  - Ankylosing spondylitis [Fatal]
  - Sacroiliitis [Fatal]
  - Pulmonary embolism [Not Recovered/Not Resolved]
  - Malaise [Recovered/Resolved]
  - Burning sensation [Unknown]
  - Limb discomfort [Fatal]
  - Abscess [Not Recovered/Not Resolved]
  - Dizziness [Recovered/Resolved]
  - Eating disorder [Not Recovered/Not Resolved]
  - Nasopharyngitis [Unknown]
  - Malaise [Fatal]
  - Respiratory failure [Not Recovered/Not Resolved]
  - Rash pustular [Not Recovered/Not Resolved]
  - Pyrexia [Unknown]
  - Cardiac arrest [Fatal]
  - Pneumonia [Fatal]
  - Back pain [Fatal]
  - Respiratory arrest [Unknown]
  - Inflammation [Not Recovered/Not Resolved]

NARRATIVE: CASE EVENT DATE: 201810
